FAERS Safety Report 7494724-X (Version None)
Quarter: 2011Q2

REPORT INFORMATION
  Report Type: 
  Country: None (occurrence: None)
  Receive Date: 20110520
  Receipt Date: 20110504
  Transmission Date: 20111010
  Serious: No
  Sender: FDA-Public Use
  Company Number: US-B.I. PHARMACEUTICALS,INC./RIDGEFIELD-2011-BP-05075BP

PATIENT
  Age: 73 Year
  Sex: Female

DRUGS (5)
  1. PRADAXA [Suspect]
     Indication: ATRIAL FIBRILLATION
     Dosage: 300 MG
     Route: 048
     Dates: start: 20110201, end: 20110207
  2. WARFARIN SODIUM [Concomitant]
  3. VERAPAMIL EXTENDED-RELEASE [Concomitant]
     Indication: ATRIAL FIBRILLATION
     Route: 048
     Dates: start: 20000101
  4. DIGOXIN [Concomitant]
     Indication: ATRIAL FIBRILLATION
     Route: 048
     Dates: start: 20000101
  5. LYRICA [Concomitant]
     Indication: NEUROPATHY PERIPHERAL
     Route: 048
     Dates: start: 20080101

REACTIONS (3)
  - URINARY TRACT INFECTION [None]
  - HAEMATURIA [None]
  - VAGINAL HAEMORRHAGE [None]
